FAERS Safety Report 19047889 (Version 1)
Quarter: 2021Q1

REPORT INFORMATION
  Report Type: Spontaneous
  Country: US (occurrence: US)
  Receive Date: 20210323
  Receipt Date: 20210323
  Transmission Date: 20210420
  Serious: Yes (Other)
  Sender: FDA-Public Use
  Company Number: US-AMERICAN REGENT INC-2021000689

PATIENT
  Age: 81 Year
  Sex: Male

DRUGS (3)
  1. GEMCITABINE. [Suspect]
     Active Substance: GEMCITABINE
     Dosage: 800 MG/M2 ON DAYS 1 AND 8 OF A 21?DAY CYCLE (TOTAL OF 10 CYCLES)
     Route: 065
  2. PACLITAX NAB [Suspect]
     Active Substance: PACLITAXEL
     Indication: ACINAR CELL CARCINOMA OF PANCREAS
     Dosage: UNK, 4 CYCLES
     Route: 065
  3. GEMCITABINE. [Suspect]
     Active Substance: GEMCITABINE
     Indication: ACINAR CELL CARCINOMA OF PANCREAS
     Dosage: 1000 MG/M2 ON DAYS 1, 8, AND 15 OF A 28?DAY CYCLE (TOTAL OF ONE CYCLE)
     Route: 065

REACTIONS (4)
  - Loss of personal independence in daily activities [Recovered/Resolved]
  - Acinar cell carcinoma of pancreas [Recovering/Resolving]
  - Disease progression [Recovering/Resolving]
  - Oedema peripheral [Recovered/Resolved]
